FAERS Safety Report 23956843 (Version 1)
Quarter: 2024Q2

REPORT INFORMATION
  Report Type: Spontaneous
  Country: US (occurrence: US)
  Receive Date: 20240610
  Receipt Date: 20240610
  Transmission Date: 20240716
  Serious: No
  Sender: FDA-Public Use
  Company Number: US-VANDA PHARMACEUTICALS, INC-2023ILOUS001937

PATIENT
  Sex: Female

DRUGS (1)
  1. FANAPT [Suspect]
     Active Substance: ILOPERIDONE
     Indication: Product used for unknown indication
     Dosage: 2 MILLIGRAM, BID, TWICE A DAY
     Route: 065

REACTIONS (2)
  - Dizziness [Unknown]
  - Orthostatic hypotension [Unknown]
